FAERS Safety Report 4827410-2 (Version None)
Quarter: 2005Q4

REPORT INFORMATION
  Report Type: 
  Country: None (occurrence: None)
  Receive Date: 20051110
  Receipt Date: 20051031
  Transmission Date: 20060501
  Serious: Yes (Hospitalization, Other)
  Sender: FDA-Public Use
  Company Number: GXKR2005GB01895

PATIENT
  Age: 94 Year
  Sex: Female

DRUGS (8)
  1. ATENOLOL [Suspect]
     Indication: HYPERTENSION
     Dosage: 75 MG  MANE, ORAL
     Route: 048
     Dates: end: 20051004
  2. AMISULPRIDE (AMISULPRIDE) [Suspect]
     Indication: HALLUCINATION
     Dosage: 125 MG NOCTE, ORAL
     Route: 048
     Dates: start: 20050816
  3. SENNA (SENNA, SENNA ALEXANDRINA) [Concomitant]
  4. FUROSEMIDE [Concomitant]
  5. ALLOPURINOL [Concomitant]
  6. RAMIPRIL [Concomitant]
  7. ISOSORBIDE MONONITRATE [Concomitant]
  8. WARFARIN SODIUM [Concomitant]

REACTIONS (4)
  - CARDIAC FAILURE [None]
  - DRUG INTERACTION [None]
  - ELECTROCARDIOGRAM QT PROLONGED [None]
  - PULMONARY OEDEMA [None]
